FAERS Safety Report 17659451 (Version 1)
Quarter: 2020Q2

REPORT INFORMATION
  Report Type: Spontaneous
  Country: ES (occurrence: ES)
  Receive Date: 20200413
  Receipt Date: 20200413
  Transmission Date: 20200713
  Serious: Yes (Hospitalization)
  Sender: FDA-Public Use
  Company Number: ES-TEVA-2020-ES-1222376

PATIENT
  Age: 76 Year
  Sex: Female

DRUGS (2)
  1. ENALAPRIL (2142A) [Suspect]
     Active Substance: ENALAPRIL
     Indication: HYPERTENSION
     Dosage: 25 MG DAY (5-0-20)
     Route: 048
     Dates: start: 20180120, end: 20190120
  2. NOLOTIL 575 MG CAPSULAS DURAS, 10 CAPSULAS [Suspect]
     Active Substance: METAMIZOLE MAGNESIUM
     Dosage: 575 MG, 1-1-1; 10 CAPSULES
     Route: 048
     Dates: start: 20190117, end: 20190120

REACTIONS (1)
  - Acute kidney injury [Recovered/Resolved]

NARRATIVE: CASE EVENT DATE: 20190120
